FAERS Safety Report 11335422 (Version 1)
Quarter: 2015Q3

REPORT INFORMATION
  Report Type: Spontaneous
  Country: US (occurrence: US)
  Receive Date: 20150804
  Receipt Date: 20150804
  Transmission Date: 20151125
  Serious: No
  Sender: FDA-Public Use
  Company Number: ALCN2006US001584

PATIENT

DRUGS (1)
  1. NEVANAC [Suspect]
     Active Substance: NEPAFENAC
     Indication: PROPHYLAXIS
     Dosage: 1 DF, UNK
     Route: 047

REACTIONS (1)
  - Therapeutic response delayed [Recovered/Resolved]
